FAERS Safety Report 12641568 (Version 1)
Quarter: 2016Q3

REPORT INFORMATION
  Report Type: Spontaneous
  Country: US (occurrence: US)
  Receive Date: 20160810
  Receipt Date: 20160810
  Transmission Date: 20161109
  Serious: Yes (Hospitalization)
  Sender: FDA-Public Use
  Company Number: US-ELITE LABORATORIES INC.-2016ELT00005

PATIENT
  Sex: Female

DRUGS (1)
  1. PHENTERMINE. [Suspect]
     Active Substance: PHENTERMINE
     Dosage: UNK
     Dates: start: 201601, end: 201607

REACTIONS (6)
  - Nausea [Unknown]
  - Off label use [Recovered/Resolved]
  - Headache [Not Recovered/Not Resolved]
  - Needle track marks [Not Recovered/Not Resolved]
  - Skin burning sensation [Not Recovered/Not Resolved]
  - Vomiting [Unknown]

NARRATIVE: CASE EVENT DATE: 201601
